FAERS Safety Report 26124343 (Version 1)
Quarter: 2025Q4

REPORT INFORMATION
  Report Type: Report from Study
  Country: US (occurrence: US)
  Receive Date: 20251205
  Receipt Date: 20251205
  Transmission Date: 20260117
  Serious: Yes (Hospitalization)
  Sender: ABBVIE
  Company Number: US-ABBVIE-6519355

PATIENT
  Age: 87 Year
  Sex: Male

DRUGS (2)
  1. SKYRIZI [Suspect]
     Active Substance: RISANKIZUMAB-RZAA
     Indication: Psoriasis
     Route: 058
     Dates: start: 202510
  2. SKYRIZI [Suspect]
     Active Substance: RISANKIZUMAB-RZAA
     Route: 058
     Dates: start: 20241203

REACTIONS (7)
  - Fistula [Unknown]
  - Infection [Unknown]
  - Unevaluable event [Unknown]
  - Fall [Recovering/Resolving]
  - Musculoskeletal stiffness [Unknown]
  - Bladder operation [Unknown]
  - Contusion [Unknown]

NARRATIVE: CASE EVENT DATE: 20220101
